FAERS Safety Report 25230336 (Version 1)
Quarter: 2025Q2

REPORT INFORMATION
  Report Type: Spontaneous
  Country: US (occurrence: US)
  Receive Date: 20250423
  Receipt Date: 20250423
  Transmission Date: 20250716
  Serious: Yes (Hospitalization, Other)
  Sender: INTERCHEM
  Company Number: US-HQ SPECIALTY-US-2025INT000029

PATIENT
  Age: 56 Year
  Sex: Male

DRUGS (1)
  1. CEFAZOLIN [Suspect]
     Active Substance: CEFAZOLIN
     Indication: Intraoperative care
     Route: 042

REACTIONS (1)
  - Drug-induced liver injury [Recovered/Resolved]
